FAERS Safety Report 7091629-3 (Version None)
Quarter: 2010Q4

REPORT INFORMATION
  Report Type: 
  Country: None (occurrence: None)
  Receive Date: 20101109
  Receipt Date: 20090720
  Transmission Date: 20110411
  Serious: No
  Sender: FDA-Public Use
  Company Number: US-KINGPHARMUSA00001-K200900859

PATIENT
  Age: 73 Year
  Sex: Female
  Weight: 60.317 kg

DRUGS (6)
  1. FLECTOR [Suspect]
     Indication: ARTHRITIS
     Dosage: 1 PATCH, BID
     Route: 061
     Dates: start: 20090710
  2. GEMFIBROZIL [Concomitant]
     Indication: BLOOD CHOLESTEROL ABNORMAL
     Dosage: UNK
  3. ATENOLOL [Concomitant]
     Indication: HYPERTENSION
     Dosage: UNK
  4. CALCIUM MAGNESIUM [Concomitant]
     Indication: BONE DISORDER
     Dosage: UNK
  5. VITAMIN D [Concomitant]
     Indication: VITAMIN D DEFICIENCY
     Dosage: 1000 U, QD
  6. DIURETICS [Concomitant]
     Indication: HYPERTENSION
     Dosage: UNK
     Route: 048
     Dates: start: 20090701, end: 20090701

REACTIONS (2)
  - DYSURIA [None]
  - URINE OUTPUT DECREASED [None]
